FAERS Safety Report 23428318 (Version 1)
Quarter: 2024Q1

REPORT INFORMATION
  Report Type: Spontaneous
  Country: GB (occurrence: GB)
  Receive Date: 20240122
  Receipt Date: 20240122
  Transmission Date: 20240410
  Serious: Yes (Hospitalization)
  Sender: FDA-Public Use
  Company Number: None

PATIENT
  Age: 81 Year
  Sex: Male
  Weight: 87 kg

DRUGS (12)
  1. MIRTAZAPINE [Suspect]
     Active Substance: MIRTAZAPINE
     Indication: Ill-defined disorder
     Dosage: UNK
     Dates: start: 20231213
  2. CALCIUM CARBONATE\CHOLECALCIFEROL [Concomitant]
     Active Substance: CALCIUM CARBONATE\CHOLECALCIFEROL
     Indication: Ill-defined disorder
     Dosage: ONE TO BE CHEWED DAILY EXCEPT ON DAY OF ALENDRO...
     Dates: start: 20230715
  3. ACYCLOVIR [Concomitant]
     Active Substance: ACYCLOVIR
     Indication: Ill-defined disorder
     Dosage: ONE TO BE TAKEN TWICE DAILY
     Dates: start: 20221031
  4. ALENDRONIC ACID [Concomitant]
     Active Substance: ALENDRONIC ACID
     Indication: Ill-defined disorder
     Dosage: TAKE ONE TABLET WEEKLY ON THE SAME DAY EACH WEE...
     Dates: start: 20230715
  5. ALFUZOSIN [Concomitant]
     Active Substance: ALFUZOSIN
     Indication: Ill-defined disorder
     Dosage: ONE TO BE TAKEN DAILY (REPLACES TAMSULOSIN)
     Dates: start: 20221031
  6. ATORVASTATIN [Concomitant]
     Active Substance: ATORVASTATIN
     Indication: Ill-defined disorder
     Dosage: ONE TO BE TAKEN ONCE DAILY
     Dates: start: 20221031
  7. CREON [Concomitant]
     Active Substance: PANCRELIPASE AMYLASE\PANCRELIPASE LIPASE\PANCRELIPASE PROTEASE
     Indication: Ill-defined disorder
     Dosage: TWO TABLETS (20,000 UNITS) TO BE TAKEN WITH SNACKS
     Dates: start: 20231009
  8. FLECAINIDE ACETATE [Concomitant]
     Active Substance: FLECAINIDE ACETATE
     Indication: Ill-defined disorder
     Dosage: TAKE ONE TABLET TWICE A DAY
     Dates: start: 20230403
  9. MIRTAZAPINE [Concomitant]
     Active Substance: MIRTAZAPINE
     Indication: Ill-defined disorder
     Dosage: ONE TO BE TAKEN AT NIGHT
     Dates: start: 20231211, end: 20240115
  10. PERINDOPRIL ERBUMINE [Concomitant]
     Active Substance: PERINDOPRIL ERBUMINE
     Indication: Ill-defined disorder
     Dosage: ONE TO BE TAKEN ONCE IN THE EVENING 30 MINUTES ...
     Dates: start: 20230614
  11. QUININE SULFATE [Concomitant]
     Active Substance: QUININE SULFATE
     Indication: Ill-defined disorder
     Dosage: ONE TO BE TAKEN AT NIGHT
     Dates: start: 20221031, end: 20240115
  12. RIVAROXABAN [Concomitant]
     Active Substance: RIVAROXABAN
     Indication: Ill-defined disorder
     Dosage: ONE TO BE TAKEN ONCE DAILY WITH FOOD
     Dates: start: 20221031

REACTIONS (2)
  - Adverse drug reaction [Recovered/Resolved]
  - Confusional state [Recovered/Resolved]

NARRATIVE: CASE EVENT DATE: 20231213
